FAERS Safety Report 9948759 (Version 2)
Quarter: 2015Q1

REPORT INFORMATION
  Report Type: Spontaneous
  Country: DK (occurrence: DK)
  Receive Date: 20140304
  Receipt Date: 20150325
  Transmission Date: 20150721
  Serious: Yes (Other)
  Sender: FDA-Public Use
  Company Number: DK-AMGEN-DNKSP2014013875

PATIENT
  Age: 68 Year
  Sex: Female

DRUGS (3)
  1. XGEVA [Suspect]
     Active Substance: DENOSUMAB
     Indication: BREAST CANCER METASTATIC
     Dosage: 120 MG, Q4WK
     Route: 058
     Dates: start: 201208, end: 20130530
  2. PREDNISOLONE. [Concomitant]
     Active Substance: PREDNISOLONE
     Indication: BREAST CANCER METASTATIC
     Dosage: UNK
     Dates: start: 20090704
  3. ZOMETA [Suspect]
     Active Substance: ZOLEDRONIC ACID
     Indication: BREAST CANCER METASTATIC
     Dosage: 4 MG/100 ML
     Route: 042
     Dates: start: 200905, end: 201006

REACTIONS (4)
  - Osteonecrosis of jaw [Recovering/Resolving]
  - Pain [Unknown]
  - Impaired healing [Unknown]
  - Purulent discharge [Unknown]

NARRATIVE: CASE EVENT DATE: 20130123
